FAERS Safety Report 7656908-7 (Version None)
Quarter: 2011Q3

REPORT INFORMATION
  Report Type: 
  Country: None (occurrence: None)
  Receive Date: 20110804
  Receipt Date: 20110801
  Transmission Date: 20111222
  Serious: No
  Sender: FDA-Public Use
  Company Number: US-TEVA-294822USA

PATIENT
  Sex: Female
  Weight: 57.204 kg

DRUGS (6)
  1. WELLBUTRIN [Concomitant]
     Indication: DEPRESSION
  2. PLAN B ONE-STEP [Suspect]
     Dosage: 1.5 MILLIGRAM;
     Route: 048
     Dates: start: 20110729, end: 20110729
  3. PLAN B ONE-STEP [Suspect]
     Dosage: 1.5 MILLIGRAM;
     Route: 048
     Dates: start: 20110727, end: 20110727
  4. PLAN B ONE-STEP [Suspect]
     Indication: POST COITAL CONTRACEPTION
     Dosage: 1.5 MILLIGRAM;
     Route: 048
     Dates: start: 20110723, end: 20110723
  5. PHENAZOPYRIDINE HCL TAB [Suspect]
     Indication: FUNGAL INFECTION
  6. THIORIDAZINE HCL [Concomitant]
     Indication: DEPRESSION

REACTIONS (6)
  - ABDOMINAL PAIN LOWER [None]
  - ANXIETY [None]
  - BACK PAIN [None]
  - DYSURIA [None]
  - VOMITING [None]
  - NAUSEA [None]
